FAERS Safety Report 16112524 (Version 2)
Quarter: 2019Q3

REPORT INFORMATION
  Report Type: Spontaneous
  Country: US (occurrence: US)
  Receive Date: 20190325
  Receipt Date: 20190716
  Transmission Date: 20191004
  Serious: No
  Sender: FDA-Public Use
  Company Number: US-PFIZER INC-2019119794

PATIENT
  Age: 55 Year
  Sex: Male
  Weight: 68.4 kg

DRUGS (4)
  1. LYRICA [Suspect]
     Active Substance: PREGABALIN
     Indication: NEURITIS
     Dosage: 100 MG, 3X/DAY
     Route: 048
  2. LYRICA [Suspect]
     Active Substance: PREGABALIN
     Indication: NEURALGIA
     Dosage: 200 MG, 3X/DAY
     Route: 048
     Dates: start: 20180922
  3. LYRICA [Suspect]
     Active Substance: PREGABALIN
     Indication: PAIN IN EXTREMITY
  4. LYRICA [Suspect]
     Active Substance: PREGABALIN
     Indication: HYPOAESTHESIA

REACTIONS (6)
  - Fluid retention [Recovered/Resolved]
  - Product prescribing error [Unknown]
  - Pain [Unknown]
  - Swelling face [Recovering/Resolving]
  - Drug ineffective [Unknown]
  - Fatigue [Recovered/Resolved]

NARRATIVE: CASE EVENT DATE: 201809
